FAERS Safety Report 6377001-X (Version None)
Quarter: 2009Q3

REPORT INFORMATION
  Report Type: 
  Country: None (occurrence: None)
  Receive Date: 20090925
  Receipt Date: 20090917
  Transmission Date: 20100115
  Serious: Yes (Hospitalization)
  Sender: FDA-Public Use
  Company Number: JP-ABBOTT-09P-087-0597829-00

PATIENT
  Sex: Female
  Weight: 37 kg

DRUGS (1)
  1. HUMIRA [Suspect]
     Indication: RHEUMATOID ARTHRITIS
     Route: 058
     Dates: start: 20090323

REACTIONS (3)
  - CYSTITIS [None]
  - GASTRIC ULCER [None]
  - SPINAL COMPRESSION FRACTURE [None]
